FAERS Safety Report 26000836 (Version 1)
Quarter: 2025Q4

REPORT INFORMATION
  Report Type: Spontaneous
  Country: US (occurrence: US)
  Receive Date: 20251105
  Receipt Date: 20251105
  Transmission Date: 20260117
  Serious: Yes (Hospitalization)
  Sender: ANI
  Company Number: US-ANIPHARMA-2025-US-043626

PATIENT
  Sex: Male

DRUGS (9)
  1. CORTICOTROPIN [Suspect]
     Active Substance: CORTICOTROPIN
     Indication: Nephrotic syndrome
     Dosage: 40 UNITS SUBCUTANEOUSLY TWICE A WEEK
     Route: 058
     Dates: start: 20250402
  2. JARDIANCE [Concomitant]
     Active Substance: EMPAGLIFLOZIN
  3. LOSARTAN [Concomitant]
     Active Substance: LOSARTAN
  4. FENOFIBRATE [Concomitant]
     Active Substance: FENOFIBRATE
  5. ATENOLOL [Concomitant]
     Active Substance: ATENOLOL
  6. ASPIRIN [Concomitant]
     Active Substance: ASPIRIN
  7. VITAMINS [Concomitant]
     Active Substance: VITAMINS
  8. FISH OIL [Concomitant]
     Active Substance: FISH OIL
  9. IRON [Concomitant]
     Active Substance: IRON

REACTIONS (4)
  - Urinary tract infection [Recovered/Resolved]
  - Nosocomial infection [Recovered/Resolved]
  - Contraindicated product administered [Unknown]
  - Dialysis [Not Recovered/Not Resolved]

NARRATIVE: CASE EVENT DATE: 20250402
